FAERS Safety Report 4819385-7 (Version None)
Quarter: 2005Q4

REPORT INFORMATION
  Report Type: 
  Country: None (occurrence: None)
  Receive Date: 20051031
  Receipt Date: 20050725
  Transmission Date: 20060501
  Serious: No
  Sender: FDA-Public Use
  Company Number: 2005PV000736

PATIENT
  Age: 43 Year
  Sex: Female
  Weight: 97.977 kg

DRUGS (8)
  1. SYMLIN [Suspect]
     Indication: DIABETES MELLITUS NON-INSULIN-DEPENDENT
     Dosage: 60 MCG;TID;SC, TID;SC, 15 MCG;TID;SC
     Route: 058
     Dates: start: 20050701
  2. SYMLIN [Suspect]
     Indication: DIABETES MELLITUS NON-INSULIN-DEPENDENT
     Dosage: 60 MCG;TID;SC, TID;SC, 15 MCG;TID;SC
     Route: 058
     Dates: start: 20050701
  3. SYMLIN [Suspect]
     Indication: DIABETES MELLITUS NON-INSULIN-DEPENDENT
     Dosage: 60 MCG;TID;SC, TID;SC, 15 MCG;TID;SC
     Route: 058
     Dates: start: 20050701
  4. NOVOLOG [Concomitant]
  5. GLUCOPHAGE ^AB1C^ [Concomitant]
  6. PLAVIX [Concomitant]
  7. ACCUPRIL [Concomitant]
  8. WELLBUTRIN [Concomitant]

REACTIONS (3)
  - BLOOD GLUCOSE INCREASED [None]
  - NAUSEA [None]
  - VOMITING [None]
